FAERS Safety Report 20323667 (Version 1)
Quarter: 2022Q1

REPORT INFORMATION
  Report Type: Spontaneous
  Country: US (occurrence: None)
  Receive Date: 20220111
  Receipt Date: 20220111
  Transmission Date: 20220423
  Serious: Yes (Death)
  Sender: FDA-Public Use
  Company Number: None

PATIENT
  Age: 76 Year
  Sex: Male

DRUGS (1)
  1. DOFETILIDE [Suspect]
     Active Substance: DOFETILIDE
     Indication: Atrial fibrillation
     Dosage: 500 MCG TWICE A DAY ORAL?
     Route: 048
     Dates: start: 201611, end: 202112

REACTIONS (1)
  - Neoplasm malignant [None]

NARRATIVE: CASE EVENT DATE: 20211217
